FAERS Safety Report 9429228 (Version 1)
Quarter: 2013Q3

REPORT INFORMATION
  Report Type: Spontaneous
  Country: FR (occurrence: FR)
  Receive Date: 20130730
  Receipt Date: 20130730
  Transmission Date: 20140515
  Serious: Yes (Life-Threatening)
  Sender: FDA-Public Use
  Company Number: FR-BAYER-2013-090915

PATIENT
  Age: 70 Year
  Sex: Male

DRUGS (5)
  1. LEVITRA [Suspect]
     Dosage: 2 TO 3 TIMES/ MONTH
     Route: 048
     Dates: start: 2012
  2. RAMIPRIL [Concomitant]
     Dosage: 5 MG, QD
  3. PANTOPRAZOLE [Concomitant]
  4. TAHOR [Concomitant]
  5. ISOPTINE [Concomitant]
     Dosage: 240 MG, UNK

REACTIONS (1)
  - Ischaemic stroke [Recovered/Resolved]
